FAERS Safety Report 13913830 (Version 1)
Quarter: 2017Q3

REPORT INFORMATION
  Report Type: Spontaneous
  Country: US (occurrence: US)
  Receive Date: 20170829
  Receipt Date: 20170829
  Transmission Date: 20171127
  Serious: No
  Sender: FDA-Public Use
  Company Number: US-PFIZER INC-2017364600

PATIENT
  Age: 65 Year
  Sex: Male

DRUGS (2)
  1. VIAGRA [Suspect]
     Active Substance: SILDENAFIL CITRATE
     Indication: ERECTILE DYSFUNCTION
     Dosage: 100 MG PILL IN HALF AND THEN IN QUARTERS
  2. VIAGRA [Suspect]
     Active Substance: SILDENAFIL CITRATE
     Dosage: TAKE A QUARTER ONCE A WEEK

REACTIONS (6)
  - Paraesthesia [Unknown]
  - Vision blurred [Unknown]
  - Headache [Unknown]
  - Muscle spasms [Unknown]
  - Balance disorder [Unknown]
  - Dizziness postural [Unknown]
